FAERS Safety Report 5847939-8 (Version None)
Quarter: 2008Q3

REPORT INFORMATION
  Report Type: 
  Country: None (occurrence: None)
  Receive Date: 20080814
  Receipt Date: 20080804
  Transmission Date: 20090109
  Serious: Yes (Other)
  Sender: FDA-Public Use
  Company Number: 08H-144-0314697-00

PATIENT
  Age: 68 Year
  Sex: Female

DRUGS (7)
  1. DOBUTAMINE HCL [Suspect]
     Indication: STRESS ECHOCARDIOGRAM
     Dosage: SEE IMAGE
  2. ATROPINE [Suspect]
     Indication: STRESS ECHOCARDIOGRAM
     Dosage: 0.25 MG, FOUR TIMES WITH 1 MINUTE INTERVAL, INTRAVENOUS BOLUS
     Route: 040
  3. BISOPROLOL FUMARATE [Concomitant]
  4. IRBERSARTAN (ANGIOTENSIN II ANTAGONISTS) [Concomitant]
  5. HYDROCHLOROTHIAZIDE [Concomitant]
  6. ATORVASTATIN CALCIUM [Concomitant]
  7. RANITIDINE [Concomitant]

REACTIONS (1)
  - GLOBAL AMNESIA [None]
